FAERS Safety Report 22146828 (Version 3)
Quarter: 2023Q2

REPORT INFORMATION
  Report Type: Report from Study
  Country: CN (occurrence: None)
  Receive Date: 20230328
  Receipt Date: 20230424
  Transmission Date: 20230722
  Serious: Yes (Hospitalization)
  Sender: FDA-Public Use
  Company Number: CN-Eisai Medical Research-EC-2023-137039

PATIENT
  Age: 49 Year
  Sex: Female

DRUGS (7)
  1. LENVATINIB [Suspect]
     Active Substance: LENVATINIB
     Indication: Malignant melanoma
     Route: 048
     Dates: start: 20230208
  2. PEMBROLIZUMAB [Suspect]
     Active Substance: PEMBROLIZUMAB
     Indication: Malignant melanoma
     Route: 041
     Dates: start: 20230208
  3. THROMBOPOIETIN [Concomitant]
     Active Substance: THROMBOPOIETIN
     Dates: start: 20230320, end: 20230320
  4. URSODIOL [Concomitant]
     Active Substance: URSODIOL
     Dates: start: 20230320, end: 20230320
  5. FUROSEMIDE [Concomitant]
     Active Substance: FUROSEMIDE
     Dates: start: 20230320, end: 20230320
  6. PHOSPHOLIPID [Concomitant]
     Active Substance: PHOSPHOLIPID
     Dates: start: 20230320, end: 20230320
  7. NIFEDIPINE [Concomitant]
     Active Substance: NIFEDIPINE
     Dates: start: 20230320, end: 20230320

REACTIONS (1)
  - Acute kidney injury [Recovering/Resolving]

NARRATIVE: CASE EVENT DATE: 20230320
